FAERS Safety Report 23469342 (Version 2)
Quarter: 2024Q1

REPORT INFORMATION
  Report Type: Report from Study
  Country: FR (occurrence: FR)
  Receive Date: 20240202
  Receipt Date: 20240214
  Transmission Date: 20240409
  Serious: Yes (Death)
  Sender: FDA-Public Use
  Company Number: FR-SUN PHARMACEUTICAL INDUSTRIES LTD-2024RR-429249

PATIENT
  Age: 52 Year
  Sex: Male
  Weight: 71 kg

DRUGS (8)
  1. TILDRAKIZUMAB [Suspect]
     Active Substance: TILDRAKIZUMAB
     Indication: Psoriasis
     Dosage: 100 MILLIGRAM, FIRST INJECTION ON DAY 0, THEN ON DAY 28 AND THEN IN EVERY 12 WEEKS FOR 6 MONTHS
     Route: 058
     Dates: start: 20230714, end: 20231103
  2. FUROSEMIDE [Concomitant]
     Active Substance: FUROSEMIDE
     Indication: Cirrhosis alcoholic
     Dosage: 20 MILLIGRAM, UNK
     Route: 048
     Dates: start: 20230817, end: 20231225
  3. SPIRONOLACTONE [Concomitant]
     Active Substance: SPIRONOLACTONE
     Indication: Cirrhosis alcoholic
     Dosage: 100 MILLIGRAM, UNK
     Route: 048
     Dates: start: 20230817, end: 20231225
  4. LANSOPRAZOLE [Concomitant]
     Active Substance: LANSOPRAZOLE
     Indication: Abdominal pain upper
     Dosage: 30 MILLIGRAM, UNK
     Route: 048
     Dates: start: 20230817, end: 20231225
  5. LACTULOSE [Concomitant]
     Active Substance: LACTULOSE
     Indication: Laxative supportive care
     Dosage: 10 GRAM/15ML
     Route: 048
     Dates: start: 20230926, end: 20231225
  6. Spasfon [Concomitant]
     Indication: Abdominal pain
     Dosage: 160 MILLIGRAM
     Route: 048
     Dates: start: 20230926, end: 20231225
  7. CYAMEMAZINE [Concomitant]
     Active Substance: CYAMEMAZINE
     Indication: Product used for unknown indication
     Dosage: 25 MILLIGRAM, BID, 1 TABLET MORNING AND 1 TABLET EVENING
  8. VALIUM [Concomitant]
     Active Substance: DIAZEPAM
     Indication: Product used for unknown indication
     Dosage: 10 MILLIGRAM, QID, 1 TABLET MORNING, NOON, EVENING AND BEDTIME
     Route: 065

REACTIONS (1)
  - Cirrhosis alcoholic [Fatal]

NARRATIVE: CASE EVENT DATE: 20231225
